FAERS Safety Report 7598325-4 (Version None)
Quarter: 2011Q3

REPORT INFORMATION
  Report Type: 
  Country: None (occurrence: None)
  Receive Date: 20110708
  Receipt Date: 20110624
  Transmission Date: 20111222
  Serious: Yes (Hospitalization)
  Sender: FDA-Public Use
  Company Number: PHHO2011NL11018

PATIENT
  Sex: Female
  Weight: 68 kg

DRUGS (5)
  1. MYCOPHENOLIC ACID [Suspect]
     Indication: GRAFT VERSUS HOST DISEASE
  2. COTRIM [Concomitant]
     Indication: PROPHYLAXIS
     Dosage: 60 MG, 2X WEEK
     Route: 048
     Dates: start: 20110329, end: 20110603
  3. POSACONAZOLE [Concomitant]
     Indication: PROPHYLAXIS
     Dosage: 700 MG, QID
     Route: 048
     Dates: start: 20110101, end: 20110603
  4. VALACYCLOVIR HYDROCHLORIDE [Concomitant]
     Indication: PROPHYLAXIS
     Dosage: 500 MG, BID
     Route: 048
     Dates: start: 20110401, end: 20110603
  5. SANDIMMUNE [Suspect]
     Indication: GRAFT VERSUS HOST DISEASE
     Dosage: 50 MG, BID
     Route: 048
     Dates: start: 20110417

REACTIONS (2)
  - HYPOPHAGIA [None]
  - RENAL FAILURE [None]
